FAERS Safety Report 8924432 (Version 3)
Quarter: 2013Q1

REPORT INFORMATION
  Report Type: Spontaneous
  Country: JP (occurrence: JP)
  Receive Date: 20121126
  Receipt Date: 20130102
  Transmission Date: 20140127
  Serious: Yes (Hospitalization, Other)
  Sender: FDA-Public Use
  Company Number: PHHY2012JP107191

PATIENT
  Age: 75 Year
  Sex: Male

DRUGS (1)
  1. VOLTAREN SR [Suspect]
     Indication: PROCEDURAL PAIN
     Dosage: 75 MG, QD (DAILY)
     Route: 048
     Dates: start: 2008, end: 20110820

REACTIONS (8)
  - Gastrointestinal stenosis [Recovering/Resolving]
  - Intestinal obstruction [Unknown]
  - Intestinal dilatation [Unknown]
  - Fluid retention [Recovering/Resolving]
  - Abdominal distension [Recovering/Resolving]
  - Intestinal mass [Recovered/Resolved]
  - Small intestine ulcer [Recovering/Resolving]
  - Abdominal pain upper [Recovering/Resolving]
